FAERS Safety Report 25832767 (Version 1)
Quarter: 2025Q3

REPORT INFORMATION
  Report Type: Report from Study
  Country: CA (occurrence: CA)
  Receive Date: 20250922
  Receipt Date: 20250922
  Transmission Date: 20251021
  Serious: Yes (Other)
  Sender: ABBVIE
  Company Number: CA-ABBVIE-6457111

PATIENT
  Age: 60 Year
  Sex: Female

DRUGS (1)
  1. RINVOQ [Suspect]
     Active Substance: UPADACITINIB
     Indication: Crohn^s disease
     Dosage: FOR 12 WEEKS, THEN REDUCE TO 15MG ONCE DAILY FOR MAINTENANCE, FORM STRENGTH: 45 MILLIGRAM
     Route: 048
     Dates: start: 20250822

REACTIONS (7)
  - Systemic lupus erythematosus [Unknown]
  - Cystitis [Unknown]
  - Stomatitis [Recovering/Resolving]
  - Lip pain [Unknown]
  - Oropharyngeal pain [Unknown]
  - Dysphagia [Unknown]
  - Product use in unapproved indication [Unknown]

NARRATIVE: CASE EVENT DATE: 20250101
